FAERS Safety Report 11142662 (Version 1)
Quarter: 2015Q2

REPORT INFORMATION
  Report Type: Spontaneous
  Country: US (occurrence: US)
  Receive Date: 20150527
  Receipt Date: 20150527
  Transmission Date: 20150821
  Serious: No
  Sender: FDA-Public Use
  Company Number: US-GLAXOSMITHKLINE-US2015GSK071033

PATIENT
  Age: 55 Year
  Sex: Female

DRUGS (1)
  1. ALLI [Suspect]
     Active Substance: ORLISTAT
     Indication: PRODUCT USED FOR UNKNOWN INDICATION
     Dosage: 2-3 AFTER MEALS,3/ PER DAY PILL.
     Route: 048

REACTIONS (5)
  - Constipation [Unknown]
  - Product quality issue [Unknown]
  - Abdominal distension [Unknown]
  - Drug ineffective [Unknown]
  - Product packaging quantity issue [Unknown]
